FAERS Safety Report 17917165 (Version 1)
Quarter: 2020Q2

REPORT INFORMATION
  Report Type: Spontaneous
  Country: JP (occurrence: JP)
  Receive Date: 20200619
  Receipt Date: 20200619
  Transmission Date: 20200714
  Serious: Yes (Other)
  Sender: FDA-Public Use
  Company Number: JP-PFIZER INC-2020068124

PATIENT
  Age: 76 Year
  Sex: Female

DRUGS (2)
  1. ANASTROZOLE. [Concomitant]
     Active Substance: ANASTROZOLE
     Dosage: UNK
     Dates: start: 20200110
  2. IBRANCE [Suspect]
     Active Substance: PALBOCICLIB
     Dosage: UNK
     Route: 048
     Dates: start: 20200110

REACTIONS (6)
  - Weight decreased [Unknown]
  - Taste disorder [Unknown]
  - Fatigue [Unknown]
  - Neutropenia [Unknown]
  - Cerebral infarction [Unknown]
  - Psychosexual disorder [Unknown]

NARRATIVE: CASE EVENT DATE: 20200206
